FAERS Safety Report 19231415 (Version 4)
Quarter: 2022Q4

REPORT INFORMATION
  Report Type: Report from Study
  Country: FR (occurrence: FR)
  Receive Date: 20210507
  Receipt Date: 20221224
  Transmission Date: 20230113
  Serious: Yes (Other)
  Sender: FDA-Public Use
  Company Number: FR-JNJFOC-20210315920

PATIENT
  Age: 74 Year
  Sex: Female

DRUGS (2)
  1. BORTEZOMIB [Suspect]
     Active Substance: BORTEZOMIB
     Indication: Plasma cell myeloma
     Dosage: UNK
     Route: 065
     Dates: start: 20200717, end: 20200717
  2. BORTEZOMIB [Suspect]
     Active Substance: BORTEZOMIB
     Dosage: UNK
     Route: 065
     Dates: start: 20200814, end: 20200814

REACTIONS (8)
  - Clostridium difficile colitis [Recovered/Resolved]
  - Cholecystitis [Recovered/Resolved]
  - Cholestasis [Not Recovered/Not Resolved]
  - Bacteriuria [Recovered/Resolved]
  - Oral fungal infection [Recovered/Resolved]
  - Muscle spasms [Recovered/Resolved]
  - Lung disorder [Recovered/Resolved]
  - Bone pain [Not Recovered/Not Resolved]

NARRATIVE: CASE EVENT DATE: 20200801
